FAERS Safety Report 7355191-X (Version None)
Quarter: 2011Q1

REPORT INFORMATION
  Report Type: 
  Country: None (occurrence: None)
  Receive Date: 20110316
  Receipt Date: 20110308
  Transmission Date: 20110831
  Serious: Yes (Hospitalization, Other)
  Sender: FDA-Public Use
  Company Number: US-PFIZER INC-2010057704

PATIENT
  Sex: Female

DRUGS (4)
  1. DILANTIN [Suspect]
     Indication: CONVULSION
     Dosage: 300 MG, 2X/DAY
     Route: 048
     Dates: start: 20010101, end: 20010918
  2. DILANTIN [Suspect]
     Dosage: 750 MG, UNK
     Route: 042
     Dates: start: 20010731, end: 20010831
  3. DILANTIN [Suspect]
     Dosage: 100 MG, UNK
     Route: 048
     Dates: start: 20010731, end: 20010831
  4. DILANTIN [Suspect]
     Dosage: 100 MG, UNK
     Route: 042
     Dates: start: 20010731, end: 20010831

REACTIONS (1)
  - STEVENS-JOHNSON SYNDROME [None]
